FAERS Safety Report 7402141-3 (Version None)
Quarter: 2011Q2

REPORT INFORMATION
  Report Type: 
  Country: None (occurrence: None)
  Receive Date: 20110408
  Receipt Date: 20101220
  Transmission Date: 20111010
  Serious: Yes (Hospitalization, Other)
  Sender: FDA-Public Use
  Company Number: US-BAYER-200942928NA

PATIENT
  Sex: Female

DRUGS (17)
  1. ALEVE [Concomitant]
  2. CITALOPRAM [Concomitant]
  3. COUMADIN [Concomitant]
  4. FLAXSEED OIL [Concomitant]
     Dosage: 1000 MG, UNK
  5. MINOCYCLINE [Concomitant]
     Dosage: 100 MG, UNK
  6. LOVENOX [Concomitant]
  7. CELEBREX [Concomitant]
     Dosage: UNK
     Dates: start: 20040101, end: 20050101
  8. YASMIN [Suspect]
     Indication: MENORRHAGIA
     Route: 048
  9. IRON SUPPLEMENT [Concomitant]
  10. YAZ [Suspect]
     Indication: MENORRHAGIA
     Route: 048
     Dates: start: 20061001, end: 20090515
  11. WARFARIN SODIUM [Concomitant]
  12. LEVOTHYROXINE [Concomitant]
  13. NITROGLYCERIN [Concomitant]
  14. ASPIRIN [Concomitant]
  15. GABAPENTIN [Concomitant]
  16. LISINOPRIL [Concomitant]
     Dosage: 20 MG, UNK
  17. SIMVASTATIN [Concomitant]
     Dosage: 20 MG, UNK

REACTIONS (2)
  - DEEP VEIN THROMBOSIS [None]
  - PULMONARY EMBOLISM [None]
